FAERS Safety Report 7378589-2 (Version None)
Quarter: 2011Q1

REPORT INFORMATION
  Report Type: 
  Country: None (occurrence: None)
  Receive Date: 20110317
  Receipt Date: 20110308
  Transmission Date: 20110831
  Serious: Yes (Hospitalization)
  Sender: FDA-Public Use
  Company Number: 028871

PATIENT
  Sex: Male
  Weight: 95 kg

DRUGS (2)
  1. CERTOLIZUMAB PEGOL (CERTOLIZUMAB PEGOL) [Suspect]
     Indication: CROHN'S DISEASE
     Dosage: 400 MG 1X/2 WEEKS, AT WEEKS 9, 2 AND 4, SUBCUTANEOUS, 400 MG 1X/4 WEEKS, SUBCUTANEOUS
     Route: 058
     Dates: start: 20091005
  2. CERTOLIZUMAB PEGOL (CERTOLIZUMAB PEGOL) [Suspect]
     Indication: CROHN'S DISEASE
     Dosage: 400 MG 1X/2 WEEKS, AT WEEKS 9, 2 AND 4, SUBCUTANEOUS, 400 MG 1X/4 WEEKS, SUBCUTANEOUS
     Route: 058
     Dates: end: 20110228

REACTIONS (1)
  - ANAL ABSCESS [None]
